FAERS Safety Report 15288459 (Version 1)
Quarter: 2018Q3

REPORT INFORMATION
  Report Type: Spontaneous
  Country: US (occurrence: US)
  Receive Date: 20180802
  Receipt Date: 20180802
  Transmission Date: 20181010
  Serious: Yes (Life-Threatening, Disabling)
  Sender: FDA-Public Use
  Company Number: None

PATIENT
  Age: 58 Year
  Sex: Female
  Weight: 51.75 kg

DRUGS (1)
  1. CELECOXIB. [Suspect]
     Active Substance: CELECOXIB
     Indication: SCIATICA
     Dosage: ?          QUANTITY:1 CAPSULE(S);?
     Route: 048
     Dates: start: 20180728, end: 20180728

REACTIONS (8)
  - Lip swelling [None]
  - Rash [None]
  - Chest discomfort [None]
  - Swelling face [None]
  - Joint stiffness [None]
  - Dizziness [None]
  - Hypersensitivity [None]
  - Hypoaesthesia oral [None]

NARRATIVE: CASE EVENT DATE: 20180728
